FAERS Safety Report 5334588-3 (Version None)
Quarter: 2007Q2

REPORT INFORMATION
  Report Type: 
  Country: None (occurrence: None)
  Receive Date: 20070525
  Receipt Date: 20070522
  Transmission Date: 20071010
  Serious: Yes (Hospitalization)
  Sender: FDA-Public Use
  Company Number: CA-BRISTOL-MYERS SQUIBB COMPANY-13788807

PATIENT
  Age: 53 Year
  Sex: Male

DRUGS (4)
  1. ORENCIA [Suspect]
     Indication: RHEUMATOID ARTHRITIS
     Route: 042
     Dates: start: 20070405, end: 20070503
  2. PREDNISONE TAB [Concomitant]
     Route: 002
  3. ASPIRIN [Concomitant]
     Route: 002
  4. COZAAR [Concomitant]

REACTIONS (2)
  - PYREXIA [None]
  - SEPSIS [None]
